FAERS Safety Report 9151558 (Version 1)
Quarter: 2013Q1

REPORT INFORMATION
  Report Type: Spontaneous
  Country: US (occurrence: US)
  Receive Date: 20130308
  Receipt Date: 20130308
  Transmission Date: 20140127
  Serious: Yes (Other)
  Sender: FDA-Public Use
  Company Number: US-PFIZER INC-2013079560

PATIENT
  Age: 76 Year
  Sex: Male
  Weight: 109 kg

DRUGS (9)
  1. LIPITOR [Suspect]
     Indication: ARTERIAL DISORDER
     Dosage: 20 MG, DAILY
     Dates: start: 1997
  2. ZOLOFT [Concomitant]
     Indication: DEPRESSION
     Dosage: UNK
  3. ALPRAZOLAM [Concomitant]
     Indication: DEPRESSION
     Dosage: UNK
  4. GABAPENTIN [Concomitant]
     Indication: NECK PAIN
     Dosage: UNK
  5. ADVAIR DISKUS [Concomitant]
     Indication: LUNG DISORDER
     Dosage: UNK
  6. SPIRIVA [Concomitant]
     Indication: LUNG DISORDER
     Dosage: UNK
  7. ASPIRIN [Concomitant]
     Dosage: UNK
  8. ISOSORBIDE [Concomitant]
     Indication: CARDIAC DISORDER
     Dosage: UNK
  9. PREDNISONE [Concomitant]
     Indication: LUNG DISORDER
     Dosage: 0.5 DF, EVERY OTHER DAY

REACTIONS (1)
  - Chronic obstructive pulmonary disease [Unknown]
